FAERS Safety Report 4681855-2 (Version None)
Quarter: 2005Q2

REPORT INFORMATION
  Report Type: 
  Country: None (occurrence: None)
  Receive Date: 20050602
  Receipt Date: 20050523
  Transmission Date: 20051028
  Serious: Yes (Death)
  Sender: FDA-Public Use
  Company Number: 2005079479

PATIENT
  Age: 17 Month
  Sex: Male

DRUGS (3)
  1. GENOTROPIN [Suspect]
     Indication: ILL-DEFINED DISORDER
     Dosage: 0.2 MG (0.2 MG , DAILY AT NIGHT), SUBCUTANEOUS
     Route: 058
     Dates: start: 20041011
  2. HYDROCORTISONE [Concomitant]
  3. DESMOPRESIN (DESMOPRESSIN) [Concomitant]

REACTIONS (1)
  - DEATH [None]
